FAERS Safety Report 20963955 (Version 1)
Quarter: 2022Q2

REPORT INFORMATION
  Report Type: Spontaneous
  Country: PT (occurrence: PT)
  Receive Date: 20220615
  Receipt Date: 20220615
  Transmission Date: 20220720
  Serious: Yes (Life-Threatening, Other)
  Sender: FDA-Public Use
  Company Number: PT-BAXTER-2022BAX011585

PATIENT
  Age: 76 Year
  Sex: Female

DRUGS (11)
  1. ANASTROZOLE [Suspect]
     Active Substance: ANASTROZOLE
     Indication: Invasive ductal breast carcinoma
     Dosage: UNK (START DATE: 31-JAN-2013)
  2. LETROZOLE [Suspect]
     Active Substance: LETROZOLE
     Indication: Invasive ductal breast carcinoma
     Dosage: UNK (START DATE: 05-JUN-2018)
     Dates: end: 20181213
  3. RIBOCICLIB [Suspect]
     Active Substance: RIBOCICLIB
     Indication: Invasive ductal breast carcinoma
     Dosage: UNK (START DATE: 20-SEP-2018)
     Dates: end: 201810
  4. DOXORUBICIN [Suspect]
     Active Substance: DOXORUBICIN
     Indication: Invasive ductal breast carcinoma
     Dosage: UNK, NEOADJUVANT CHEMOTHERAPY WITH 4 CYCLES OF DOXORUBICIN AND CYCLOPHOSPHAMIDE
     Dates: end: 20071022
  5. VINORELBINE TARTRATE [Suspect]
     Active Substance: VINORELBINE TARTRATE
     Indication: Invasive ductal breast carcinoma
     Dosage: UNK,4 CYCLES OF VINORELBINA
     Dates: end: 20071022
  6. DOCETAXEL [Suspect]
     Active Substance: DOCETAXEL
     Indication: Invasive ductal breast carcinoma
     Dosage: UNK, 4 CYCLES OF DOXORUBICIN AND CYCLOPHOSPHAMIDE
     Dates: end: 20071022
  7. PALBOCICLIB [Suspect]
     Active Substance: PALBOCICLIB
     Indication: Invasive ductal breast carcinoma
     Dosage: UNK (START DATE: FEB-2021)
     Route: 048
  8. PALBOCICLIB [Suspect]
     Active Substance: PALBOCICLIB
     Dosage: UNK (START DATE: AUG-2019)
     Route: 048
     Dates: end: 202012
  9. CYCLOPHOSPHAMIDE [Suspect]
     Active Substance: CYCLOPHOSPHAMIDE
     Indication: Invasive ductal breast carcinoma
     Dosage: UNK, NEOADJUVANT CHEMOTHERAPY WITH 4 CYCLES OF DOXORUBICIN AND CYCLOPHOSPHAMIDE
     Dates: end: 20071022
  10. FULVESTRANT [Concomitant]
     Active Substance: FULVESTRANT
     Indication: Invasive ductal breast carcinoma
     Dosage: UNK (START DATE: 13-DEC-2018)
  11. FLUCONAZOLE [Concomitant]
     Active Substance: FLUCONAZOLE
     Indication: Pneumonia
     Dosage: UNK

REACTIONS (10)
  - Anaphylactic reaction [Unknown]
  - Pneumonia [Unknown]
  - Asthenia [Unknown]
  - COVID-19 [Recovered/Resolved with Sequelae]
  - Resorption bone increased [Unknown]
  - Joint neoplasm [Unknown]
  - Fatigue [Unknown]
  - Soft tissue neoplasm [Unknown]
  - Therapeutic product effect incomplete [Unknown]
  - Tumour marker increased [Unknown]

NARRATIVE: CASE EVENT DATE: 20070101
